FAERS Safety Report 19729768 (Version 1)
Quarter: 2021Q3

REPORT INFORMATION
  Report Type: Spontaneous
  Country: US (occurrence: US)
  Receive Date: 20210821
  Receipt Date: 20210821
  Transmission Date: 20211014
  Serious: Yes (Death, Hospitalization)
  Sender: FDA-Public Use
  Company Number: US-MDD US OPERATIONS-SUP202108-001637

PATIENT
  Age: 19 Year
  Sex: Female

DRUGS (2)
  1. OXCARBAZEPINE. [Suspect]
     Active Substance: OXCARBAZEPINE
     Indication: PRODUCT USED FOR UNKNOWN INDICATION
     Dosage: NOT PROVIDED
  2. BUPROPION. [Suspect]
     Active Substance: BUPROPION
     Indication: PRODUCT USED FOR UNKNOWN INDICATION
     Dosage: NOT PROVIDED

REACTIONS (10)
  - Cardiac arrest [Fatal]
  - Hypothermia [Unknown]
  - Hyperhidrosis [Unknown]
  - Seizure [Unknown]
  - Hypertension [Unknown]
  - Intentional overdose [Fatal]
  - Ventricular fibrillation [Fatal]
  - Unresponsive to stimuli [Unknown]
  - Tachycardia [Unknown]
  - Mydriasis [Unknown]
